FAERS Safety Report 16319940 (Version 3)
Quarter: 2019Q2

REPORT INFORMATION
  Report Type: Report from Study
  Country: DE (occurrence: DE)
  Receive Date: 20190516
  Receipt Date: 20190611
  Transmission Date: 20190711
  Serious: Yes (Other)
  Sender: FDA-Public Use
  Company Number: PHHY2019DE108445

PATIENT
  Sex: Female
  Weight: 94.8 kg

DRUGS (13)
  1. RAMIPRIL. [Concomitant]
     Active Substance: RAMIPRIL
     Indication: PRODUCT USED FOR UNKNOWN INDICATION
     Route: 065
  2. KISQALI [Suspect]
     Active Substance: RIBOCICLIB
     Indication: BREAST CANCER METASTATIC
     Dosage: 600 MG, ONCE DAILY/2 WEEKS/THAN 1 WEEK PAUSE
     Route: 048
     Dates: start: 20180513, end: 20180529
  3. KISQALI [Suspect]
     Active Substance: RIBOCICLIB
     Dosage: 600 MG, ONCE DAILY/1 WEEKS/THAN 1 WEEK PAUSE
     Route: 048
     Dates: start: 20180826, end: 20180915
  4. KISQALI [Suspect]
     Active Substance: RIBOCICLIB
     Dosage: 400 MG, ONCE DAILY/3 WEEKS/THAN 1 WEEK PAUSE
     Route: 048
     Dates: start: 20180924, end: 20181013
  5. PANTOPRAZOLE [Concomitant]
     Active Substance: PANTOPRAZOLE
     Indication: PRODUCT USED FOR UNKNOWN INDICATION
     Route: 065
  6. KISQALI [Suspect]
     Active Substance: RIBOCICLIB
     Dosage: 600 MG, ONCE DAILY/3 WEEKS/THAN 1 WEEK PAUSE
     Route: 048
     Dates: start: 20180624, end: 20180714
  7. KISQALI [Suspect]
     Active Substance: RIBOCICLIB
     Dosage: 600 MG, ONCE DAILY/3 WEEKS/THAN 1 WEEK PAUSE
     Route: 048
     Dates: start: 20180923, end: 20180923
  8. LETROZOLE. [Suspect]
     Active Substance: LETROZOLE
     Indication: BREAST CANCER METASTATIC
     Dosage: 2.5 MG, QD
     Route: 048
     Dates: start: 20180526
  9. TORASEMIDE [Concomitant]
     Active Substance: TORSEMIDE
     Indication: PRODUCT USED FOR UNKNOWN INDICATION
     Route: 065
  10. KISQALI [Suspect]
     Active Substance: RIBOCICLIB
     Dosage: 600 MG, ONCE DAILY/2 WEEKS/THAN 1 WEEK PAUSE
     Route: 048
     Dates: start: 20180603, end: 20180616
  11. KISQALI [Suspect]
     Active Substance: RIBOCICLIB
     Dosage: 600 MG, ONCE DAILY/3 WEEKS/THAN 1 WEEK PAUSE
     Route: 048
     Dates: start: 20181021
  12. BISOPROLOL [Concomitant]
     Active Substance: BISOPROLOL
     Indication: PRODUCT USED FOR UNKNOWN INDICATION
     Route: 065
  13. KISQALI [Suspect]
     Active Substance: RIBOCICLIB
     Dosage: 600 MG, ONCE DAILY/1 WEEKS/THAN 1 WEEK PAUSE
     Route: 048
     Dates: start: 20180722, end: 20180811

REACTIONS (3)
  - Palpitations [Recovered/Resolved]
  - Angina pectoris [Recovered/Resolved]
  - Anxiety [Recovered/Resolved]

NARRATIVE: CASE EVENT DATE: 20190507
